FAERS Safety Report 16346935 (Version 1)
Quarter: 2019Q2

REPORT INFORMATION
  Report Type: Spontaneous
  Country: FR (occurrence: FR)
  Receive Date: 20190523
  Receipt Date: 20190523
  Transmission Date: 20190711
  Serious: Yes (Hospitalization, Other)
  Sender: FDA-Public Use
  Company Number: FR-AUROBINDO-AUR-APL-2019-026901

PATIENT

DRUGS (4)
  1. TEGRETOL [Suspect]
     Active Substance: CARBAMAZEPINE
     Indication: SUICIDE ATTEMPT
     Dosage: 12 GRAM
     Route: 048
     Dates: start: 20171229, end: 20171229
  2. FLUOXETINE [Suspect]
     Active Substance: FLUOXETINE HYDROCHLORIDE
     Indication: SUICIDE ATTEMPT
     Dosage: 280 MILLIGRAM
     Route: 048
     Dates: start: 20171229, end: 20171229
  3. LAMICTAL [Suspect]
     Active Substance: LAMOTRIGINE
     Indication: SUICIDE ATTEMPT
     Dosage: 1.25 GRAM
     Route: 048
     Dates: start: 20171229, end: 20171229
  4. URBANYL [Suspect]
     Active Substance: CLOBAZAM
     Indication: SUICIDE ATTEMPT
     Dosage: 300 MILLIGRAM
     Route: 048
     Dates: start: 20171229, end: 20171229

REACTIONS (4)
  - Coma [Recovered/Resolved]
  - Toxicity to various agents [Recovered/Resolved]
  - Myoclonus [Recovered/Resolved]
  - Generalised tonic-clonic seizure [Recovered/Resolved]

NARRATIVE: CASE EVENT DATE: 20171229
